FAERS Safety Report 6942366-4 (Version None)
Quarter: 2010Q3

REPORT INFORMATION
  Report Type: 
  Country: None (occurrence: None)
  Receive Date: 20100826
  Receipt Date: 20100812
  Transmission Date: 20110219
  Serious: Yes (Other)
  Sender: FDA-Public Use
  Company Number: PHHY2010US53490

PATIENT
  Sex: Male

DRUGS (4)
  1. ZOMETA [Suspect]
     Indication: METASTASES TO BONE
  2. NAVELBINE [Concomitant]
  3. CISPLATIN [Concomitant]
  4. AVASTIN [Concomitant]

REACTIONS (1)
  - OSTEONECROSIS OF JAW [None]
